FAERS Safety Report 22283974 (Version 1)
Quarter: 2023Q2

REPORT INFORMATION
  Report Type: Report from Study
  Country: US (occurrence: US)
  Receive Date: 20230504
  Receipt Date: 20230504
  Transmission Date: 20230722
  Serious: Yes (Other)
  Sender: FDA-Public Use
  Company Number: US-JNJFOC-20230456842

PATIENT
  Sex: Female

DRUGS (3)
  1. TREMFYA [Suspect]
     Active Substance: GUSELKUMAB
     Indication: Product used for unknown indication
     Route: 065
  2. TREMFYA [Suspect]
     Active Substance: GUSELKUMAB
  3. TREMFYA [Suspect]
     Active Substance: GUSELKUMAB

REACTIONS (7)
  - Ulcer haemorrhage [Unknown]
  - Pneumonia bacterial [Unknown]
  - Sinus operation [Unknown]
  - Bowel obstruction surgery [Unknown]
  - COVID-19 [Unknown]
  - Gait disturbance [Unknown]
  - Decreased immune responsiveness [Unknown]
